FAERS Safety Report 7510468-X (Version None)
Quarter: 2011Q2

REPORT INFORMATION
  Report Type: 
  Country: None (occurrence: None)
  Receive Date: 20110527
  Receipt Date: 20110524
  Transmission Date: 20111010
  Serious: No
  Sender: FDA-Public Use
  Company Number: US-PFIZER INC-2011112326

PATIENT
  Sex: Male
  Weight: 63.492 kg

DRUGS (2)
  1. ADVIL LIQUI-GELS [Suspect]
     Indication: HEADACHE
     Dosage: 200 MG, AS NEEDED
     Route: 048
     Dates: end: 20100101
  2. ADVIL LIQUI-GELS [Suspect]
     Dosage: HALF TABLET AS NEEDED (100 MG)
     Dates: start: 20100101

REACTIONS (1)
  - ABDOMINAL DISCOMFORT [None]
